FAERS Safety Report 6229810-5 (Version None)
Quarter: 2009Q2

REPORT INFORMATION
  Report Type: 
  Country: None (occurrence: None)
  Receive Date: 20090615
  Receipt Date: 20090603
  Transmission Date: 20091009
  Serious: Yes (Other)
  Sender: FDA-Public Use
  Company Number: GB-PFIZER INC-2009202070

PATIENT
  Age: 63 Year

DRUGS (7)
  1. CHAMPIX [Suspect]
     Dosage: 500 UG, 2X/DAY
     Route: 048
     Dates: start: 20090329, end: 20090403
  2. LEVOTHYROXINE SODIUM [Concomitant]
     Dosage: 125 UG, 1X/DAY
     Dates: start: 19990101
  3. PERINDOPRIL [Concomitant]
     Dosage: 4 MG, 1X/DAY
     Dates: start: 20070101
  4. BENDROFLUMETHIAZIDE [Concomitant]
     Dosage: 2.5 MG, UNK
     Dates: start: 19970101
  5. LORATADINE [Concomitant]
     Dosage: 10 MG, UNK
     Dates: start: 19970101
  6. QVAR 40 [Concomitant]
     Dosage: UNK
     Route: 055
     Dates: start: 20090101
  7. SALBUTAMOL [Concomitant]
     Dosage: UNK
     Route: 055
     Dates: start: 19980101

REACTIONS (21)
  - ABDOMINAL DISTENSION [None]
  - ABDOMINAL PAIN [None]
  - CHEST PAIN [None]
  - COLD SWEAT [None]
  - COUGH [None]
  - DEPRESSED MOOD [None]
  - DIARRHOEA [None]
  - DRY MOUTH [None]
  - DYSPEPSIA [None]
  - GINGIVAL PAIN [None]
  - GLOSSODYNIA [None]
  - HEADACHE [None]
  - HYPERHIDROSIS [None]
  - NAUSEA [None]
  - NIGHTMARE [None]
  - OROPHARYNGEAL PAIN [None]
  - PAIN IN EXTREMITY [None]
  - PALPITATIONS [None]
  - RHINORRHOEA [None]
  - SWOLLEN TONGUE [None]
  - VISUAL IMPAIRMENT [None]
